FAERS Safety Report 4329757-5 (Version None)
Quarter: 2004Q2

REPORT INFORMATION
  Report Type: 
  Country: None (occurrence: None)
  Receive Date: 20040401
  Receipt Date: 20040319
  Transmission Date: 20050107
  Serious: Yes (Hospitalization)
  Sender: FDA-Public Use
  Company Number: DE-GLAXOSMITHKLINE-B0327286A

PATIENT
  Age: 71 Year
  Sex: Male
  Weight: 72 kg

DRUGS (5)
  1. TOPOTECAN [Suspect]
     Indication: SMALL CELL LUNG CANCER STAGE UNSPECIFIED
     Dosage: 7.5MG CUMULATIVE DOSE
     Route: 042
     Dates: start: 20040223, end: 20040227
  2. ETOPOSIDE [Suspect]
     Indication: SMALL CELL LUNG CANCER STAGE UNSPECIFIED
     Dosage: 450MG CUMULATIVE DOSE
     Route: 042
     Dates: start: 20040225, end: 20040227
  3. NOVODIGAL [Concomitant]
     Indication: ATRIAL FIBRILLATION
  4. MOLSIDOMIN [Concomitant]
     Indication: CORONARY ARTERY DISEASE
  5. ISOSORBID DINITRATE [Concomitant]
     Indication: CORONARY ARTERY DISEASE

REACTIONS (3)
  - ABDOMINAL PAIN [None]
  - CHOLELITHIASIS [None]
  - LEUKOPENIA [None]
